FAERS Safety Report 5956335-4 (Version None)
Quarter: 2008Q4

REPORT INFORMATION
  Report Type: 
  Country: None (occurrence: None)
  Receive Date: 20081118
  Receipt Date: 20081113
  Transmission Date: 20090506
  Serious: Yes (Death, Hospitalization)
  Sender: FDA-Public Use
  Company Number: PHHY2008CH20269

PATIENT
  Sex: Male

DRUGS (1)
  1. GLEEVEC [Suspect]
     Indication: CHRONIC MYELOID LEUKAEMIA
     Dosage: 400 MG DAILY
     Dates: start: 20011001

REACTIONS (8)
  - BILE DUCT CANCER [None]
  - DIARRHOEA [None]
  - ENDOSCOPIC RETROGRADE CHOLANGIOPANCREATOGRAPHY [None]
  - HEPATIC ENZYME INCREASED [None]
  - POST PROCEDURAL BILE LEAK [None]
  - SEPSIS [None]
  - SURGERY [None]
  - TUMOUR EXCISION [None]
